FAERS Safety Report 22975011 (Version 2)
Quarter: 2023Q4

REPORT INFORMATION
  Report Type: Spontaneous
  Country: US (occurrence: US)
  Receive Date: 20230923
  Receipt Date: 20231113
  Transmission Date: 20240109
  Serious: Yes (Life-Threatening, Hospitalization, Other)
  Sender: FDA-Public Use
  Company Number: US-BAXTER-2023BAX031254

PATIENT
  Age: 47 Year
  Sex: Male
  Weight: 72.2 kg

DRUGS (12)
  1. CYCLOPHOSPHAMIDE [Suspect]
     Active Substance: CYCLOPHOSPHAMIDE
     Indication: Lymphodepletion
     Dosage: 1000 MILLIGRAM PER SQUARE METRE QD, INFUSION
     Route: 042
     Dates: start: 20230821, end: 20230824
  2. FLUDARABINE [Suspect]
     Active Substance: FLUDARABINE PHOSPHATE
     Indication: Lymphodepletion
     Dosage: 30 MILLIGRAM PER SQUARE METRE QD, (C1D-6)
     Route: 042
     Dates: start: 20230821, end: 20230824
  3. VENETOCLAX [Suspect]
     Active Substance: VENETOCLAX
     Dosage: UNK, MULTIPLE LINES OF THERAPY (GREATER THAN 5) WITH THE LAST DOSE ON 8-AUG-2023
     Route: 065
     Dates: start: 20230808
  4. CEFEPIME [Concomitant]
     Active Substance: CEFEPIME HYDROCHLORIDE
     Dosage: UNK
     Route: 065
     Dates: start: 20230810, end: 20230817
  5. PIPERACILLIN SODIUM\TAZOBACTAM SODIUM [Concomitant]
     Active Substance: PIPERACILLIN SODIUM\TAZOBACTAM SODIUM
     Dosage: UNK
     Route: 065
     Dates: start: 20230901, end: 20230901
  6. DEXAMETHASONE [Concomitant]
     Active Substance: DEXAMETHASONE
     Dosage: UNK, ONGOING
     Route: 065
     Dates: start: 20230827
  7. POSACONAZOLE [Concomitant]
     Active Substance: POSACONAZOLE
     Dosage: UNK
     Route: 065
  8. TOCILIZUMAB [Concomitant]
     Active Substance: TOCILIZUMAB
     Dosage: UNK,
     Route: 065
     Dates: start: 20230827, end: 20230902
  9. VALACYCLOVIR [Concomitant]
     Active Substance: VALACYCLOVIR HYDROCHLORIDE
     Dosage: UNK
     Route: 065
  10. VORICONAZOLE [Concomitant]
     Active Substance: VORICONAZOLE
     Dosage: UNK
     Route: 065
  11. LEVOFLOXACIN [Concomitant]
     Active Substance: LEVOFLOXACIN
     Dosage: UNK
     Route: 065
     Dates: start: 20230809, end: 20230827
  12. MEROPENEM [Concomitant]
     Active Substance: MEROPENEM
     Dosage: UNK, ONGOING
     Route: 065
     Dates: start: 20230901

REACTIONS (40)
  - Haemorrhage intracranial [Not Recovered/Not Resolved]
  - Cerebellar infarction [Not Recovered/Not Resolved]
  - Mental status changes [Not Recovered/Not Resolved]
  - Mental disorder [Not Recovered/Not Resolved]
  - Cytokine release syndrome [Recovered/Resolved]
  - Pyrexia [Recovered/Resolved]
  - Hypotension [Recovered/Resolved]
  - Hypoxia [Recovered/Resolved]
  - Brain herniation [Unknown]
  - Unresponsive to stimuli [Unknown]
  - Miosis [Recovering/Resolving]
  - Depressed level of consciousness [Unknown]
  - Pupil fixed [Unknown]
  - Cerebral haemorrhage [Unknown]
  - Hepatic infection [Not Recovered/Not Resolved]
  - Hepatomegaly [Not Recovered/Not Resolved]
  - Biliary tract disorder [Not Recovered/Not Resolved]
  - Gallbladder enlargement [Not Recovered/Not Resolved]
  - Pleural effusion [Not Recovered/Not Resolved]
  - Disseminated intravascular coagulation [Recovered/Resolved]
  - Enterovirus infection [Unknown]
  - Opportunistic infection [Unknown]
  - Respiration abnormal [Unknown]
  - Adenovirus infection [Unknown]
  - Hepatic failure [Unknown]
  - Colitis [Unknown]
  - Ascites [Unknown]
  - Multiple organ dysfunction syndrome [Unknown]
  - Tachypnoea [Unknown]
  - Dyspnoea [Unknown]
  - Thrombocytopenia [Unknown]
  - Functional gastrointestinal disorder [Unknown]
  - Coagulopathy [Unknown]
  - Hypernatraemia [Unknown]
  - Somnolence [Unknown]
  - HCoV-OC43 infection [Unknown]
  - Parainfluenzae virus infection [Unknown]
  - Rhinovirus infection [Unknown]
  - Fungal infection [Unknown]
  - Respiratory tract infection [Unknown]

NARRATIVE: CASE EVENT DATE: 20230827
